FAERS Safety Report 5211073-0 (Version None)
Quarter: 2006Q4

REPORT INFORMATION
  Report Type: 
  Country: None (occurrence: None)
  Receive Date: 20061130
  Receipt Date: 20060922
  Transmission Date: 20070319
  Serious: Yes (Other)
  Sender: FDA-Public Use
  Company Number: WAES 0609USA05514

PATIENT
  Age: 43 Year
  Sex: Male

DRUGS (5)
  1. FOSAMAX [Suspect]
     Dosage: WKY/PO
     Route: 048
     Dates: start: 20000101, end: 20060811
  2. ENBREL [Concomitant]
  3. NEXIUM [Concomitant]
  4. METHOTREXATE [Concomitant]
  5. PREDNISONE [Concomitant]

REACTIONS (1)
  - OSTEONECROSIS [None]
